FAERS Safety Report 19494048 (Version 1)
Quarter: 2021Q3

REPORT INFORMATION
  Report Type: Spontaneous
  Country: US (occurrence: US)
  Receive Date: 20210705
  Receipt Date: 20210705
  Transmission Date: 20211014
  Serious: Yes (Other)
  Sender: FDA-Public Use
  Company Number: US-PFIZER INC-2021273593

PATIENT
  Age: 51 Year
  Sex: Female
  Weight: 60.77 kg

DRUGS (2)
  1. CLINDAMYCIN HCL [Suspect]
     Active Substance: CLINDAMYCIN HYDROCHLORIDE
     Indication: ILLNESS
     Dosage: UNK
  2. CECLOR [Suspect]
     Active Substance: CEFACLOR
     Indication: ILLNESS
     Dosage: UNK

REACTIONS (2)
  - Anaphylactic reaction [Unknown]
  - Urticaria [Unknown]
